FAERS Safety Report 8135681-2 (Version None)
Quarter: 2012Q1

REPORT INFORMATION
  Report Type: 
  Country: None (occurrence: None)
  Receive Date: 20120214
  Receipt Date: 20120131
  Transmission Date: 20120608
  Serious: Yes (Hospitalization)
  Sender: FDA-Public Use
  Company Number: FR-UCBSA-044486

PATIENT
  Sex: Female
  Weight: 69.4 kg

DRUGS (5)
  1. CIMZIA [Suspect]
     Route: 058
     Dates: start: 20110323, end: 20111026
  2. CYMBALTA [Concomitant]
     Indication: DEPRESSION
     Route: 048
  3. CIMZIA [Suspect]
     Indication: SPONDYLITIS
     Route: 058
     Dates: start: 20101116, end: 20101226
  4. CELEBREX [Concomitant]
     Indication: SPONDYLITIS
     Dosage: DOSE:200
     Route: 048
     Dates: start: 20110701
  5. MORPHINE SULFATE [Concomitant]
     Indication: SPONDYLITIS
     Route: 048

REACTIONS (3)
  - DRUG PRESCRIBING ERROR [None]
  - TOXIC SKIN ERUPTION [None]
  - URINARY TRACT INFECTION [None]
